FAERS Safety Report 24164405 (Version 3)
Quarter: 2024Q4

REPORT INFORMATION
  Report Type: Spontaneous
  Country: CA (occurrence: CA)
  Receive Date: 20240801
  Receipt Date: 20241127
  Transmission Date: 20250114
  Serious: No
  Sender: PFIZER
  Company Number: CA-PFIZER INC-202400225627

PATIENT
  Age: 50 Year
  Sex: Female

DRUGS (4)
  1. ABRILADA [Suspect]
     Active Substance: ADALIMUMAB-AFZB
     Indication: Psoriatic arthropathy
     Dosage: 40 MG, EVERY 2 WEEKS
     Route: 058
     Dates: start: 20231129
  2. EPIVAL [Concomitant]
     Active Substance: DIVALPROEX SODIUM
     Dosage: 1 DF
  3. LITHIUM [Concomitant]
     Active Substance: LITHIUM
     Dosage: 1 DF
  4. METHOTREXATE [Concomitant]
     Active Substance: METHOTREXATE
     Dosage: 1 DF
     Route: 065

REACTIONS (3)
  - Device use error [Unknown]
  - Device breakage [Unknown]
  - Drug dose omission by device [Unknown]

NARRATIVE: CASE EVENT DATE: 20240726
